FAERS Safety Report 13183493 (Version 2)
Quarter: 2017Q3

REPORT INFORMATION
  Report Type: Spontaneous
  Country: US (occurrence: US)
  Receive Date: 20170203
  Receipt Date: 20170927
  Transmission Date: 20171127
  Serious: No
  Sender: FDA-Public Use
  Company Number: US-ASTRAZENECA-2017SE10084

PATIENT
  Sex: Female

DRUGS (1)
  1. BYDUREON [Suspect]
     Active Substance: EXENATIDE
     Route: 065

REACTIONS (6)
  - Depressed mood [Unknown]
  - Injection site pain [Unknown]
  - Irritability [Unknown]
  - Injection site extravasation [Unknown]
  - Injection site nodule [Unknown]
  - Injection site haemorrhage [Unknown]
